FAERS Safety Report 7668094-8 (Version None)
Quarter: 2011Q3

REPORT INFORMATION
  Report Type: 
  Country: None (occurrence: None)
  Receive Date: 20110808
  Receipt Date: 20110725
  Transmission Date: 20111222
  Serious: Yes (Other)
  Sender: FDA-Public Use
  Company Number: US-JNJFOC-20110711092

PATIENT
  Sex: Female

DRUGS (5)
  1. PREDNISONE [Concomitant]
     Route: 065
  2. REMICADE [Suspect]
     Dosage: SECOND INDUCTION
     Route: 042
     Dates: start: 20110627
  3. REMICADE [Suspect]
     Dosage: SECOND INDUCTION
     Route: 042
     Dates: start: 20110725, end: 20110725
  4. ENTOCORT EC [Concomitant]
     Route: 065
     Dates: end: 20110601
  5. REMICADE [Suspect]
     Indication: CROHN'S DISEASE
     Route: 042
     Dates: start: 20110613

REACTIONS (9)
  - DIZZINESS [None]
  - BLOOD PRESSURE DIASTOLIC INCREASED [None]
  - DYSPNOEA [None]
  - INFUSION RELATED REACTION [None]
  - PALPITATIONS [None]
  - FLUSHING [None]
  - VOMITING [None]
  - ARTHRALGIA [None]
  - NAUSEA [None]
